FAERS Safety Report 16230635 (Version 2)
Quarter: 2019Q3

REPORT INFORMATION
  Report Type: Report from Study
  Country: US (occurrence: US)
  Receive Date: 20190423
  Receipt Date: 20190910
  Transmission Date: 20191004
  Serious: Yes (Death)
  Sender: FDA-Public Use
  Company Number: US-ACTELION-A-NJ2017-149661

PATIENT
  Age: 67 Year
  Sex: Male

DRUGS (2)
  1. TRACLEER [Suspect]
     Active Substance: BOSENTAN
     Indication: PULMONARY ARTERIAL HYPERTENSION
     Dosage: 62.5 MG, BID
     Route: 048
     Dates: start: 20170118
  2. TRACLEER [Suspect]
     Active Substance: BOSENTAN
     Dosage: 125 MG, BID
     Route: 048

REACTIONS (5)
  - Weight increased [Recovering/Resolving]
  - Fluid retention [Recovering/Resolving]
  - Hot flush [Recovering/Resolving]
  - Headache [Recovering/Resolving]
  - Death [Fatal]

NARRATIVE: CASE EVENT DATE: 20170122
